FAERS Safety Report 8089005-X (Version None)
Quarter: 2012Q1

REPORT INFORMATION
  Report Type: 
  Country: None (occurrence: None)
  Receive Date: 20120128
  Receipt Date: 20110809
  Transmission Date: 20120608
  Serious: No
  Sender: FDA-Public Use
  Company Number: PR-ABBOTT-11P-131-0731737-00

PATIENT
  Sex: Female
  Weight: 69.916 kg

DRUGS (7)
  1. GLYNASE [Concomitant]
     Indication: DIABETES MELLITUS
     Route: 048
  2. AVANDIA [Concomitant]
     Indication: DIABETES MELLITUS
     Route: 048
  3. FELDENE [Concomitant]
     Indication: PAIN
     Route: 048
  4. HUMIRA [Suspect]
     Indication: RHEUMATOID ARTHRITIS
     Route: 058
     Dates: start: 20110401, end: 20110601
  5. HUMIRA [Suspect]
     Indication: OSTEOARTHRITIS
  6. DOLOGEN [Concomitant]
     Indication: PAIN
     Route: 048
  7. RELAFEN [Concomitant]
     Indication: PAIN
     Route: 048

REACTIONS (5)
  - HYPOAESTHESIA [None]
  - ARTHRITIS [None]
  - RHEUMATOID ARTHRITIS [None]
  - JOINT RANGE OF MOTION DECREASED [None]
  - BACK PAIN [None]
